FAERS Safety Report 17143491 (Version 1)
Quarter: 2019Q4

REPORT INFORMATION
  Report Type: Spontaneous
  Country: US (occurrence: US)
  Receive Date: 20191211
  Receipt Date: 20191211
  Transmission Date: 20200122
  Serious: Yes (Other)
  Sender: FDA-Public Use
  Company Number: US-AMERICAN REGENT INC-20190830

PATIENT
  Age: 84 Year
  Sex: Male
  Weight: 74.5 kg

DRUGS (20)
  1. VENOFER [Suspect]
     Active Substance: IRON SUCROSE
     Dosage: 50 MG, DURING DIALYSIS
     Dates: start: 20150909, end: 20151006
  2. MIRCERA [Suspect]
     Active Substance: METHOXY POLYETHYLENE GLYCOL-EPOETIN BETA
     Dosage: 75 MCG, DURING DIALYSIS 10 DAYS
     Dates: start: 20150722, end: 20150731
  3. MIRCERA [Suspect]
     Active Substance: METHOXY POLYETHYLENE GLYCOL-EPOETIN BETA
     Dosage: 75 MCG, DURING DIALYSIS
     Dates: start: 20151214, end: 20151216
  4. MIRCERA [Suspect]
     Active Substance: METHOXY POLYETHYLENE GLYCOL-EPOETIN BETA
     Dosage: 75 MCG, DURING DIALYSIS 24 DAYS
     Dates: start: 20150916, end: 20151009
  5. ENGERIX-B [Concomitant]
     Active Substance: HEPATITIS B VIRUS SUBTYPE ADW2 HBSAG SURFACE PROTEIN ANTIGEN
     Dosage: 40 MCG, DURING DIALYSIS 1 DAYS
     Route: 030
     Dates: start: 20150720, end: 20150720
  6. VENOFER [Suspect]
     Active Substance: IRON SUCROSE
     Dosage: 100 MG, DURING EVERY DIALYSIS
     Dates: start: 20150810, end: 20150831
  7. MIRCERA [Suspect]
     Active Substance: METHOXY POLYETHYLENE GLYCOL-EPOETIN BETA
     Dosage: 50 MCG, DURING DIALYSIS
     Dates: start: 20150812, end: 20150905
  8. CALCITRIOL. [Concomitant]
     Active Substance: CALCITRIOL
     Indication: PRODUCT USED FOR UNKNOWN INDICATION
     Dosage: 0.5 MCG
     Route: 048
     Dates: start: 20151230
  9. ENGERIX-B [Concomitant]
     Active Substance: HEPATITIS B VIRUS SUBTYPE ADW2 HBSAG SURFACE PROTEIN ANTIGEN
     Dosage: 40 MCG, POST DIALYSIS
     Route: 030
     Dates: start: 20151125, end: 20151129
  10. MIRCERA [Suspect]
     Active Substance: METHOXY POLYETHYLENE GLYCOL-EPOETIN BETA
     Dosage: 75 MCG, DURING DIALYSIS 16 DAYS
     Dates: start: 20151117, end: 20151202
  11. MIRCERA [Suspect]
     Active Substance: METHOXY POLYETHYLENE GLYCOL-EPOETIN BETA
     Dosage: 150 MCG, DURING DIALYSIS 2 VIALS
     Dates: start: 20151230, end: 20151230
  12. FLUARIX NOS [Concomitant]
     Active Substance: INFLUENZA VIRUS VACCINE
     Dosage: UNKNOWN, DURING DIALYSIS 1 DAYS
     Route: 030
     Dates: start: 20150930, end: 20150930
  13. VENOFER [Suspect]
     Active Substance: IRON SUCROSE
     Indication: PRODUCT USED FOR UNKNOWN INDICATION
     Dosage: 50 MG, DURING DIALYSIS 11 DAYS
     Dates: start: 20150729, end: 20150808
  14. VENOFER [Suspect]
     Active Substance: IRON SUCROSE
     Dosage: 50 MG, DURING DIALYSIS
     Dates: start: 20150902, end: 20150905
  15. MIRCERA [Suspect]
     Active Substance: METHOXY POLYETHYLENE GLYCOL-EPOETIN BETA
     Dosage: 100 MCG, DURING DIALYSIS
     Dates: start: 20151216, end: 20151218
  16. ENGERIX-B [Concomitant]
     Active Substance: HEPATITIS B VIRUS SUBTYPE ADW2 HBSAG SURFACE PROTEIN ANTIGEN
     Dosage: 40 MCG, DURING DIALYSIS
     Route: 030
     Dates: start: 20151216, end: 20151216
  17. MIRCERA [Suspect]
     Active Substance: METHOXY POLYETHYLENE GLYCOL-EPOETIN BETA
     Dosage: 50 MCG, DURING DIALYSIS
     Dates: start: 20151104, end: 20151110
  18. MIRCERA [Suspect]
     Active Substance: METHOXY POLYETHYLENE GLYCOL-EPOETIN BETA
     Dosage: 50 MCG, DURING DIALYSIS
     Dates: start: 20151118, end: 20151207
  19. ENGERIX-B [Concomitant]
     Active Substance: HEPATITIS B VIRUS SUBTYPE ADW2 HBSAG SURFACE PROTEIN ANTIGEN
     Dosage: 40 MCG, POST DIALYSIS 3 DAYS
     Route: 030
     Dates: start: 20150727, end: 20150729
  20. ENGERIX-B [Concomitant]
     Active Substance: HEPATITIS B VIRUS SUBTYPE ADW2 HBSAG SURFACE PROTEIN ANTIGEN
     Dosage: 40 MCG, DURING DIALYSIS
     Route: 030
     Dates: start: 20150817, end: 20150817

REACTIONS (1)
  - Hypersensitivity [Recovered/Resolved]

NARRATIVE: CASE EVENT DATE: 20151230
